FAERS Safety Report 17075044 (Version 1)
Quarter: 2019Q4

REPORT INFORMATION
  Report Type: Spontaneous
  Country: US (occurrence: US)
  Receive Date: 20191125
  Receipt Date: 20191125
  Transmission Date: 20200122
  Serious: Yes (Death)
  Sender: FDA-Public Use
  Company Number: None

PATIENT
  Age: 62 Year
  Sex: Female
  Weight: 60.9 kg

DRUGS (17)
  1. HEPARIN [Concomitant]
     Active Substance: HEPARIN SODIUM
     Dates: start: 20191125, end: 20191125
  2. INSULIN LISPRO [Concomitant]
     Active Substance: INSULIN LISPRO
     Dates: start: 20191124, end: 20191125
  3. DUO-NEB [Concomitant]
     Dates: start: 20191124, end: 20191125
  4. MEROPENUM [Concomitant]
     Active Substance: MEROPENEM
     Dates: start: 20191124, end: 20191125
  5. PROPOFOL. [Concomitant]
     Active Substance: PROPOFOL
     Dates: start: 20191124, end: 20191125
  6. KETAMINE [Concomitant]
     Active Substance: KETAMINE
     Dates: start: 20191124, end: 20191124
  7. ROCURONIUM [Concomitant]
     Active Substance: ROCURONIUM BROMIDE
     Dates: start: 20191124, end: 20191124
  8. FAMOTIDINE. [Concomitant]
     Active Substance: FAMOTIDINE
     Dates: start: 20191124, end: 20191125
  9. NOREPINEPHRINE. [Concomitant]
     Active Substance: NOREPINEPHRINE
     Dates: start: 20191124, end: 20191125
  10. LEVOTHYROXINE. [Concomitant]
     Active Substance: LEVOTHYROXINE
     Dates: start: 20191125, end: 20191125
  11. VASOPRESSIN. [Concomitant]
     Active Substance: VASOPRESSIN
     Dates: start: 20191124, end: 20191125
  12. GIAPREZA [Suspect]
     Active Substance: ANGIOTENSIN II
     Indication: SEPTIC SHOCK
     Route: 041
     Dates: start: 20191124, end: 20191125
  13. PIPERACILLIN AND TAZOBACTAM [Concomitant]
     Active Substance: PIPERACILLIN SODIUM\TAZOBACTAM SODIUM
     Dates: start: 20191124, end: 20191124
  14. VANCOMYCIN [Concomitant]
     Active Substance: VANCOMYCIN
     Dates: start: 20191124, end: 20191124
  15. EPINEPHRINE. [Concomitant]
     Active Substance: EPINEPHRINE
     Dates: start: 20191124, end: 20191125
  16. FENTANYL. [Concomitant]
     Active Substance: FENTANYL
     Dates: start: 20191124, end: 20191125
  17. HYDROCORTISONE. [Concomitant]
     Active Substance: HYDROCORTISONE
     Dates: start: 20191124, end: 20191125

REACTIONS (5)
  - Heart rate irregular [None]
  - Acute myocardial infarction [None]
  - Mean arterial pressure increased [None]
  - Ventricular tachycardia [None]
  - Cardiac arrest [None]

NARRATIVE: CASE EVENT DATE: 20191125
